FAERS Safety Report 13022179 (Version 3)
Quarter: 2017Q1

REPORT INFORMATION
  Report Type: Spontaneous
  Country: US (occurrence: US)
  Receive Date: 20161213
  Receipt Date: 20170313
  Transmission Date: 20170428
  Serious: Yes (Hospitalization, Other)
  Sender: FDA-Public Use
  Company Number: US-PFIZER INC-2016569020

PATIENT
  Age: 53 Year
  Sex: Female

DRUGS (1)
  1. XELJANZ [Suspect]
     Active Substance: TOFACITINIB CITRATE
     Indication: RHEUMATOID ARTHRITIS
     Dosage: UNK
     Dates: start: 20151122, end: 20161104

REACTIONS (8)
  - Condition aggravated [Unknown]
  - Dysstasia [Not Recovered/Not Resolved]
  - Pain [Unknown]
  - Neuropathy peripheral [Unknown]
  - Activities of daily living impaired [Unknown]
  - Asthenia [Unknown]
  - Abasia [Not Recovered/Not Resolved]
  - Walking disability [Not Recovered/Not Resolved]

NARRATIVE: CASE EVENT DATE: 201606
